FAERS Safety Report 16569826 (Version 1)
Quarter: 2019Q3

REPORT INFORMATION
  Report Type: Spontaneous
  Country: US (occurrence: US)
  Receive Date: 20190531
  Receipt Date: 20190531
  Transmission Date: 20191004
  Serious: Yes (Life-Threatening)
  Sender: FDA-Public Use
  Company Number: None

PATIENT
  Age: 28 Year
  Sex: Male
  Weight: 72.03 kg

DRUGS (2)
  1. DABIGATRAN [Suspect]
     Active Substance: DABIGATRAN
     Indication: ATRIAL FIBRILLATION
  2. DABIGATRAN [Suspect]
     Active Substance: DABIGATRAN
     Indication: DEEP VEIN THROMBOSIS
     Route: 048
     Dates: start: 20170822, end: 20190226

REACTIONS (7)
  - Fall [None]
  - Arthralgia [None]
  - Haemoglobin decreased [None]
  - Retroperitoneal haematoma [None]
  - Anaemia [None]
  - Hypotension [None]
  - Packed red blood cell transfusion [None]

NARRATIVE: CASE EVENT DATE: 20190226
